FAERS Safety Report 14224825 (Version 1)
Quarter: 2017Q4

REPORT INFORMATION
  Report Type: Spontaneous
  Country: FR (occurrence: FR)
  Receive Date: 20171127
  Receipt Date: 20171127
  Transmission Date: 20180321
  Serious: Yes (Hospitalization)
  Sender: FDA-Public Use
  Company Number: FR-MERCK KGAA-2036009

PATIENT
  Age: 43 Year
  Sex: Female

DRUGS (1)
  1. NOVOTHYROX [Suspect]
     Active Substance: LEVOTHYROXINE SODIUM
     Indication: PRODUCT USED FOR UNKNOWN INDICATION

REACTIONS (14)
  - Asthenia [None]
  - Dizziness [None]
  - Diffuse alopecia [None]
  - Muscle spasms [None]
  - Hospitalisation [None]
  - Disturbance in attention [None]
  - Glucose urine present [None]
  - Fatigue [None]
  - Mood swings [None]
  - Loss of personal independence in daily activities [None]
  - Hypothyroidism [None]
  - Weight increased [None]
  - Insomnia [None]
  - Vertigo [None]

NARRATIVE: CASE EVENT DATE: 2017
